FAERS Safety Report 10580853 (Version 1)
Quarter: 2014Q4

REPORT INFORMATION
  Report Type: Spontaneous
  Country: TR (occurrence: None)
  Receive Date: 20141110
  Receipt Date: 20141110
  Transmission Date: 20150529
  Serious: Yes (Hospitalization, Other)
  Sender: FDA-Public Use
  Company Number: 2014SCAL000225

PATIENT
  Age: 52 Year
  Sex: Male

DRUGS (3)
  1. TRANDOLAPRIL. [Suspect]
     Active Substance: TRANDOLAPRIL
     Indication: HYPERTENSION
  2. LITHIUM CARBONATE (LITHIUM CARBONATE) [Suspect]
     Active Substance: LITHIUM CARBONATE
     Indication: BIPOLAR DISORDER
  3. HYDROCHLOROTHIAZIDE (HYDROCHLOROTHIAZIDE) [Suspect]
     Active Substance: HYDROCHLOROTHIAZIDE
     Indication: HYPERTENSION

REACTIONS (12)
  - Toxicity to various agents [None]
  - Glomerular filtration rate abnormal [None]
  - Vomiting [None]
  - Tremor [None]
  - Sinus arrhythmia [None]
  - Blood urea abnormal [None]
  - Balance disorder [None]
  - Gait disturbance [None]
  - Nausea [None]
  - Dysarthria [None]
  - Blood bicarbonate abnormal [None]
  - Haemodialysis [None]
